FAERS Safety Report 21656411 (Version 1)
Quarter: 2022Q4

REPORT INFORMATION
  Report Type: Spontaneous
  Country: US (occurrence: None)
  Receive Date: 20221128
  Receipt Date: 20221128
  Transmission Date: 20230113
  Serious: Yes (Hospitalization)
  Sender: FDA-Public Use
  Company Number: None

PATIENT
  Age: 54 Year
  Sex: Male
  Weight: 83.25 kg

DRUGS (12)
  1. PAXLOVID [Suspect]
     Active Substance: NIRMATRELVIR\RITONAVIR
     Indication: COVID-19
     Dosage: 30 CAPSULES  TWICE A DAY ORAL?
     Route: 048
     Dates: start: 20220913, end: 20220913
  2. DULOXETINE [Concomitant]
     Active Substance: DULOXETINE
  3. PREDNISONE [Concomitant]
     Active Substance: PREDNISONE
  4. BUSPIRONE [Concomitant]
     Active Substance: BUSPIRONE HYDROCHLORIDE
  5. REQUIP [Concomitant]
     Active Substance: ROPINIROLE HYDROCHLORIDE
  6. TRAZODONE [Concomitant]
     Active Substance: TRAZODONE HYDROCHLORIDE
  7. VITAMIN B12 [Concomitant]
     Active Substance: CYANOCOBALAMIN
  8. ENBREL [Concomitant]
     Active Substance: ETANERCEPT
  9. NAPROXEN [Concomitant]
     Active Substance: NAPROXEN
  10. VITAMIN D3 [Concomitant]
     Active Substance: CHOLECALCIFEROL
  11. MINERALS\VITAMINS [Concomitant]
     Active Substance: MINERALS\VITAMINS
  12. VITAMINS [Concomitant]
     Active Substance: VITAMINS

REACTIONS (5)
  - Malaise [None]
  - Staring [None]
  - Speech disorder [None]
  - Unresponsive to stimuli [None]
  - Mental status changes [None]

NARRATIVE: CASE EVENT DATE: 20221013
